FAERS Safety Report 5085018-0 (Version None)
Quarter: 2006Q3

REPORT INFORMATION
  Report Type: 
  Country: None (occurrence: None)
  Receive Date: 20060815
  Receipt Date: 20060728
  Transmission Date: 20061208
  Serious: Yes (Hospitalization)
  Sender: FDA-Public Use
  Company Number: USA040362550

PATIENT
  Age: 70 Year
  Sex: Female
  Weight: 100.5 kg

DRUGS (5)
  1. HUMULIN R [Suspect]
     Indication: DIABETES MELLITUS
  2. HUMULIN N [Suspect]
     Indication: DIABETES MELLITUS
  3. ILETIN [Suspect]
     Indication: DIABETES MELLITUS
     Dates: start: 20010101
  4. ILETIN [Suspect]
     Indication: DIABETES MELLITUS
     Dates: start: 20010101
  5. ILETIN [Suspect]
     Indication: DIABETES MELLITUS

REACTIONS (9)
  - ASTHENIA [None]
  - DIZZINESS [None]
  - DRUG HYPERSENSITIVITY [None]
  - DYSPNOEA [None]
  - INFECTION [None]
  - INFLUENZA [None]
  - INTENTIONAL DRUG MISUSE [None]
  - POOR QUALITY DRUG ADMINISTERED [None]
  - WEIGHT INCREASED [None]
